FAERS Safety Report 7489111-4 (Version None)
Quarter: 2011Q2

REPORT INFORMATION
  Report Type: 
  Country: None (occurrence: None)
  Receive Date: 20110518
  Receipt Date: 20110428
  Transmission Date: 20111010
  Serious: No
  Sender: FDA-Public Use
  Company Number: US-B.I. PHARMACEUTICALS,INC./RIDGEFIELD-2011-BP-03493BP

PATIENT
  Age: 74 Year
  Sex: Male

DRUGS (16)
  1. PRADAXA [Suspect]
     Indication: ANTICOAGULANT THERAPY
  2. LIPITOR [Concomitant]
     Indication: BLOOD CHOLESTEROL INCREASED
     Dosage: 80 MG
     Route: 048
  3. ASPIRIN [Concomitant]
     Indication: CARDIAC DISORDER
     Dosage: 162 MG
     Route: 048
  4. AMARYL [Concomitant]
  5. LORAZEPAM [Concomitant]
  6. IMDUR [Concomitant]
     Indication: CARDIAC DISORDER
     Dosage: 240 MG
     Route: 048
     Dates: start: 19970101
  7. AMYLIN [Concomitant]
     Indication: DIABETES MELLITUS
     Dosage: 2 MG
     Route: 048
  8. RAMIPRIL [Concomitant]
     Dosage: 2.5 MG
     Route: 048
  9. METFORMIN HCL [Concomitant]
     Indication: DIABETES MELLITUS
     Dosage: 1000 MG
     Route: 048
  10. AVODART [Concomitant]
     Indication: PROSTATOMEGALY
     Dosage: 0.5 MG
     Route: 048
  11. CARTIA XT [Concomitant]
     Dosage: 300 MG
     Route: 048
     Dates: start: 20110101
  12. METOPROLOL TARTRATE [Concomitant]
     Indication: HYPERTENSION
     Dosage: 100 MG
     Route: 048
  13. ASST. VITAMINS AND SUPPLEMENTS [Concomitant]
     Indication: PROPHYLAXIS
  14. PROPAFENONE HYDROCHLORIDE [Concomitant]
  15. PRADAXA [Suspect]
     Indication: ATRIAL FIBRILLATION
     Dosage: 300 MG
     Route: 048
     Dates: start: 20110110
  16. NEXIUM [Concomitant]
     Indication: GASTROOESOPHAGEAL REFLUX DISEASE
     Dosage: 40 MG
     Route: 048

REACTIONS (2)
  - JOINT SWELLING [None]
  - OEDEMA PERIPHERAL [None]
